FAERS Safety Report 16763973 (Version 1)
Quarter: 2019Q3

REPORT INFORMATION
  Report Type: Spontaneous
  Country: CN (occurrence: CN)
  Receive Date: 20190902
  Receipt Date: 20190902
  Transmission Date: 20191005
  Serious: Yes (Hospitalization, Other)
  Sender: FDA-Public Use
  Company Number: CN-ASTRAZENECA-2019SF23763

PATIENT
  Age: 20404 Day
  Sex: Female
  Weight: 59.7 kg

DRUGS (12)
  1. ESPRAZOLE SODIUM FOR INJECTION [Suspect]
     Active Substance: ESOMEPRAZOLE SODIUM
     Indication: ENDOMETRIAL CANCER METASTATIC
     Dosage: MG BID INTRAVENOUS DRIP
     Route: 041
     Dates: start: 20190812, end: 20190817
  2. JINDILIN [Suspect]
     Active Substance: OCTREOTIDE ACETATE
     Indication: ILEUS PARALYTIC
     Dosage: 0.3 MG TID INTRAVENOUS DRIP
     Route: 041
     Dates: start: 20190816, end: 20190818
  3. SODIUM CHLORIDE INJECTION [Concomitant]
     Active Substance: SODIUM CHLORIDE
     Indication: ABDOMINAL INFECTION
     Dosage: 100 ML BID INTRAVENOUS DRIP
     Dates: start: 20190812, end: 20190818
  4. SODIUM CHLORIDE INJECTION [Concomitant]
     Active Substance: SODIUM CHLORIDE
     Indication: ENDOMETRIAL CANCER METASTATIC
     Dosage: 100 ML BID INTRAVENOUS DRIP
     Dates: start: 20190812, end: 20190814
  5. SODIUM CHLORIDE INJECTION [Concomitant]
     Active Substance: SODIUM CHLORIDE
     Indication: ABDOMINAL INFECTION
     Dosage: 100 ML BID INTRAVENOUS DRIP
     Dates: start: 20190812, end: 20190814
  6. CEFUROXIME SODIUM FOR INJECTION [Concomitant]
     Indication: ENDOMETRIAL CANCER METASTATIC
     Dosage: 1.5 G TID
     Dates: start: 20190812, end: 20190814
  7. SODIUM CHLORIDE INJECTION [Concomitant]
     Active Substance: SODIUM CHLORIDE
     Indication: ENDOMETRIAL CANCER METASTATIC
     Dosage: 100 ML BID INTRAVENOUS DRIP
     Dates: start: 20190812, end: 20190818
  8. GLUCOSE INJECTION [Concomitant]
     Active Substance: DEXTROSE
     Indication: ILEUS PARALYTIC
     Dates: start: 20190816, end: 20190818
  9. SODIUM CHLORIDE INJECTION [Concomitant]
     Active Substance: SODIUM CHLORIDE
     Indication: ENDOMETRIAL CANCER METASTATIC
     Dosage: 100 ML BID INTRAVENOUS DRIP
     Dates: start: 20190812, end: 20190817
  10. METRONIDAZOLE AND SODIUM CHLORIDE INJECTION [Suspect]
     Active Substance: METRONIDAZOLE\SODIUM CHLORIDE
     Indication: ENDOMETRIAL CANCER METASTATIC
     Dosage: 0.5 G TID
     Route: 041
     Dates: start: 20190812, end: 20190816
  11. SODIUM CHLORIDE INJECTION [Concomitant]
     Active Substance: SODIUM CHLORIDE
     Indication: ABDOMINAL INFECTION
     Dosage: 100 ML BID INTRAVENOUS DRIP
     Dates: start: 20190812, end: 20190817
  12. CEFOTAXIME SODIUM AND SULBACTAM SODIUM FOR INJECTION [Concomitant]
     Indication: ABDOMINAL INFECTION
     Dosage: 3 G TID
     Dates: start: 20190814, end: 20190818

REACTIONS (10)
  - Dyspnoea [Not Recovered/Not Resolved]
  - Diarrhoea [Not Recovered/Not Resolved]
  - Pulmonary embolism [Not Recovered/Not Resolved]
  - Insomnia [Not Recovered/Not Resolved]
  - Sinus tachycardia [Not Recovered/Not Resolved]
  - Electrocardiogram ST-T change [Not Recovered/Not Resolved]
  - Oedema peripheral [Not Recovered/Not Resolved]
  - Abdominal distension [Not Recovered/Not Resolved]
  - Nausea [Not Recovered/Not Resolved]
  - Vomiting [Not Recovered/Not Resolved]

NARRATIVE: CASE EVENT DATE: 20190818
